FAERS Safety Report 5807611-7 (Version None)
Quarter: 2008Q3

REPORT INFORMATION
  Report Type: 
  Country: None (occurrence: None)
  Receive Date: 20080708
  Receipt Date: 20080623
  Transmission Date: 20090109
  Serious: Yes (Other)
  Sender: FDA-Public Use
  Company Number: S08-FRA-02251-01

PATIENT
  Sex: Female

DRUGS (1)
  1. SEROPLEX (ESCITALOPRAM) [Suspect]
     Indication: DEPRESSION
     Dosage: 10 MG QD PO
     Route: 048
     Dates: start: 20071101, end: 20070101

REACTIONS (1)
  - KERATOCONJUNCTIVITIS SICCA [None]
